FAERS Safety Report 12210222 (Version 1)
Quarter: 2016Q1

REPORT INFORMATION
  Report Type: Spontaneous
  Country: US (occurrence: None)
  Receive Date: 20160324
  Receipt Date: 20160324
  Transmission Date: 20160526
  Serious: Yes (Other)
  Sender: FDA-Public Use
  Company Number: None

PATIENT
  Age: 45 Year
  Sex: Male
  Weight: 74.84 kg

DRUGS (3)
  1. VITAMIN [Concomitant]
     Active Substance: VITAMINS
  2. MAGNESIUM [Concomitant]
     Active Substance: MAGNESIUM
  3. DIAZEPAM. [Suspect]
     Active Substance: DIAZEPAM
     Indication: PAIN IN JAW
     Dates: start: 20150901, end: 20151031

REACTIONS (6)
  - Depersonalisation/derealisation disorder [None]
  - Drug withdrawal syndrome [None]
  - Anxiety [None]
  - Heart rate increased [None]
  - Restlessness [None]
  - Pain in jaw [None]

NARRATIVE: CASE EVENT DATE: 20151101
